FAERS Safety Report 6388094-8 (Version None)
Quarter: 2009Q4

REPORT INFORMATION
  Report Type: 
  Country: None (occurrence: None)
  Receive Date: 20091005
  Receipt Date: 20090902
  Transmission Date: 20100525
  Serious: No
  Sender: FDA-Public Use
  Company Number: US-BAYER-200932118NA

PATIENT
  Age: 34 Year
  Sex: Female

DRUGS (1)
  1. MIRENA [Suspect]
     Indication: CONTRACEPTION
     Dosage: CONTINUOUS
     Route: 015
     Dates: start: 20070124

REACTIONS (5)
  - ABDOMINAL PAIN [None]
  - ADNEXA UTERI PAIN [None]
  - FEELING ABNORMAL [None]
  - HEADACHE [None]
  - UTERINE SPASM [None]
